FAERS Safety Report 13884752 (Version 1)
Quarter: 2017Q3

REPORT INFORMATION
  Report Type: Spontaneous
  Country: NO (occurrence: NO)
  Receive Date: 20170821
  Receipt Date: 20170821
  Transmission Date: 20171127
  Serious: Yes (Hospitalization, Other)
  Sender: FDA-Public Use
  Company Number: NO-009507513-1708NOR008075

PATIENT
  Age: 65 Year
  Sex: Male

DRUGS (1)
  1. EZETROL [Suspect]
     Active Substance: EZETIMIBE
     Indication: CORONARY ARTERY DISEASE
     Dosage: 10 MG, QD
     Route: 048
     Dates: start: 20161118, end: 20170728

REACTIONS (3)
  - Cholelithiasis [Recovered/Resolved with Sequelae]
  - Cholecystitis [Recovered/Resolved with Sequelae]
  - Bile duct obstruction [Recovered/Resolved with Sequelae]

NARRATIVE: CASE EVENT DATE: 20161118
